FAERS Safety Report 10966414 (Version 12)
Quarter: 2018Q3

REPORT INFORMATION
  Report Type: Spontaneous
  Country: US (occurrence: US)
  Receive Date: 20150330
  Receipt Date: 20180911
  Transmission Date: 20181010
  Serious: Yes (Other)
  Sender: FDA-Public Use
  Company Number: US-PFIZER INC-2015107257

PATIENT
  Age: 83 Year
  Sex: Female
  Weight: 71.44 kg

DRUGS (32)
  1. HYDROCHLOROTHIAZIDE. [Concomitant]
     Active Substance: HYDROCHLOROTHIAZIDE
     Dosage: 12.5 MG, DAILY
     Route: 048
  2. ZOSTAVAX [Concomitant]
     Active Substance: VARICELLA-ZOSTER VIRUS STRAIN OKA/MERCK LIVE ANTIGEN
     Dosage: 1 IU, 1 UNITS SUBCUTANEOUS ONE TIME; DISPENSE: 1
     Route: 058
  3. TETRYZOLINE HYDROCHLORIDE [Concomitant]
     Active Substance: TETRAHYDROZOLINE HYDROCHLORIDE
     Indication: GLAUCOMA
     Dosage: UNK, 3X/DAY
  4. OMEPRAZOLE. [Concomitant]
     Active Substance: OMEPRAZOLE
     Dosage: 20 MG, 1X/DAY
  5. FLUVIRINE [Concomitant]
     Dosage: UNK
     Route: 030
     Dates: start: 2015, end: 2016
  6. TRAZODONE [Concomitant]
     Active Substance: TRAZODONE HYDROCHLORIDE
     Dosage: 50 MG 1?2 TAB(S), AS NEEDED (AT BEDTIME)
     Route: 048
  7. NORCO [Concomitant]
     Active Substance: ACETAMINOPHEN\HYDROCODONE BITARTRATE
     Dosage: (HYDROCODONE BITARTRATE 325MG , PARACETAMOL 7.5MG), 2X/DAY
     Route: 048
  8. NITROSTAT [Concomitant]
     Active Substance: NITROGLYCERIN
     Dosage: 0.4 MG, THREE TIMES A DAYAS NEEDED
     Route: 060
  9. PNEUMOVAX 23 [Concomitant]
     Active Substance: PNEUMOCOCCAL VACCINE, POLYVALENT 23
     Dosage: 1 IU, UNK(1 UNITS INJECTABLE ONE TIME; DISPENSE: 1)
  10. BENAZEPRIL [Concomitant]
     Active Substance: BENAZEPRIL HYDROCHLORIDE
     Indication: HYPERTENSION
     Dosage: UNK, 1X/DAY
  11. LYRICA [Suspect]
     Active Substance: PREGABALIN
     Indication: NERVE INJURY
     Dosage: 75 MG, 3X/DAY
     Route: 048
     Dates: start: 2015
  12. LYRICA [Suspect]
     Active Substance: PREGABALIN
     Indication: DIABETIC NEUROPATHY
  13. CLOPIDOGREL [Concomitant]
     Active Substance: CLOPIDOGREL BISULFATE
     Dosage: 75 MG, DAILY
     Route: 048
  14. MOVANTIK [Concomitant]
     Active Substance: NALOXEGOL OXALATE
     Dosage: 25 MG, DAILY
     Route: 048
  15. METFORMIN [Concomitant]
     Active Substance: METFORMIN HYDROCHLORIDE
     Indication: DIABETES MELLITUS
     Dosage: 500 MG, DAILY
     Route: 048
  16. COREG [Concomitant]
     Active Substance: CARVEDILOL
     Indication: CARDIAC DISORDER
     Dosage: 6.25 MG, 2X/DAY
  17. COLACE [Concomitant]
     Active Substance: DOCUSATE SODIUM
     Dosage: 100 MG, 1X/DAY
  18. LYRICA [Suspect]
     Active Substance: PREGABALIN
     Indication: FIBROMYALGIA
     Dosage: UNK
  19. CRESTOR [Concomitant]
     Active Substance: ROSUVASTATIN CALCIUM
     Dosage: 40 MG, 1X/DAY BEDTIME
     Route: 048
  20. FUROSEMIDE. [Concomitant]
     Active Substance: FUROSEMIDE
     Indication: FLUID RETENTION
     Dosage: UNK, 1X/DAY
  21. KETOROLAC [Concomitant]
     Active Substance: KETOROLAC\KETOROLAC TROMETHAMINE
     Dosage: 30 MG/ML, UNK
  22. BENAZEPRIL HYDROCHLORIDE W/HYDROCHLOROTHIAZIDE [Concomitant]
     Dosage: (BENAZEPRIL 20 MG?HYDROCHLORTHIAZIDE 12.5 MG), DAILY
     Route: 048
  23. FLUTICASONE. [Concomitant]
     Active Substance: FLUTICASONE
     Dosage: 100 UG, DAILY (50MCG/INH SPRAY AT 2 SPRAYS EVERY DAY)
     Route: 045
  24. DORZOLAMIDE [Concomitant]
     Active Substance: DORZOLAMIDE
     Indication: GLAUCOMA
     Dosage: 1 GTT, 3X/DAY (2% SOLUTION)
     Route: 047
  25. PANTOPRAZOLE [Concomitant]
     Active Substance: PANTOPRAZOLE
     Dosage: 20 MG, DAILY
     Route: 048
  26. PREVNAR 13 [Concomitant]
     Active Substance: PNEUMOCOCCAL 13-VALENT CONJUGATE VACCINE
     Dosage: 1 DF, UNK
     Route: 030
  27. PLAVIX [Concomitant]
     Active Substance: CLOPIDOGREL BISULFATE
     Indication: PLAQUE SHIFT
     Dosage: 75 MG, 1X/DAY
  28. ASPIRIN. [Concomitant]
     Active Substance: ASPIRIN
     Dosage: 81 MG, 1X/DAY
  29. TRIAMCINOLONE [Concomitant]
     Active Substance: TRIAMCINOLONE
     Dosage: 0.1 %, 4X/DAY
     Route: 061
  30. METFORMIN [Concomitant]
     Active Substance: METFORMIN HYDROCHLORIDE
     Dosage: UNK, 1X/DAY
  31. CARVEDILOL. [Concomitant]
     Active Substance: CARVEDILOL
     Dosage: 3.125 MG, 2X/DAY
     Route: 048
  32. LISINOPRIL. [Concomitant]
     Active Substance: LISINOPRIL
     Indication: CARDIAC DISORDER
     Dosage: 40 MG, 1X/DAY

REACTIONS (30)
  - Loss of consciousness [Unknown]
  - Suicidal ideation [Unknown]
  - General physical condition abnormal [Not Recovered/Not Resolved]
  - Insomnia [Unknown]
  - Eating disorder [Unknown]
  - Stenosis [Unknown]
  - Cardiac disorder [Unknown]
  - Nausea [Unknown]
  - Dyspnoea [Unknown]
  - Asthenia [Not Recovered/Not Resolved]
  - Drug dependence [Unknown]
  - Deafness [Unknown]
  - Impaired work ability [Unknown]
  - Dysgeusia [Unknown]
  - Contusion [Unknown]
  - Plaque shift [Unknown]
  - Drug dose omission [Not Recovered/Not Resolved]
  - Nervousness [Unknown]
  - Joint swelling [Not Recovered/Not Resolved]
  - Glaucoma [Unknown]
  - Nerve injury [Unknown]
  - Drug effect incomplete [Unknown]
  - Loss of personal independence in daily activities [Unknown]
  - Heart rate decreased [Unknown]
  - Blindness [Not Recovered/Not Resolved]
  - Pain [Unknown]
  - Intentional product misuse [Unknown]
  - Malaise [Unknown]
  - Peripheral swelling [Unknown]
  - Memory impairment [Unknown]

NARRATIVE: CASE EVENT DATE: 201808
